FAERS Safety Report 13212312 (Version 1)
Quarter: 2017Q1

REPORT INFORMATION
  Report Type: Spontaneous
  Country: US (occurrence: US)
  Receive Date: 20170209
  Receipt Date: 20170209
  Transmission Date: 20170428
  Serious: No
  Sender: FDA-Public Use
  Company Number: US-ALLERGAN-1653018US

PATIENT
  Age: 51 Year
  Sex: Female
  Weight: 114.29 kg

DRUGS (1)
  1. BOTOX [Suspect]
     Active Substance: ONABOTULINUMTOXINA
     Indication: MIGRAINE
     Dosage: 200 UNITS, SINGLE
     Route: 030
     Dates: start: 20150807, end: 20150807

REACTIONS (7)
  - Decreased appetite [Recovered/Resolved]
  - Eye pain [Recovered/Resolved]
  - Vision blurred [Recovered/Resolved]
  - Musculoskeletal stiffness [Recovered/Resolved]
  - Pain [Recovered/Resolved]
  - Headache [Recovering/Resolving]
  - Fibromyalgia [Recovered/Resolved]
